FAERS Safety Report 21972557 (Version 5)
Quarter: 2023Q2

REPORT INFORMATION
  Report Type: Spontaneous
  Country: IT (occurrence: IT)
  Receive Date: 20230209
  Receipt Date: 20230406
  Transmission Date: 20230721
  Serious: Yes (Life-Threatening, Hospitalization, Other)
  Sender: FDA-Public Use
  Company Number: IT-HAMELN-2022HAM001264

PATIENT
  Sex: Male

DRUGS (8)
  1. LEVETIRACETAM [Suspect]
     Active Substance: LEVETIRACETAM
     Indication: Seizure
     Dosage: 20 MILLIGRAM/KILOGRAM LOAD DOSE
     Route: 065
  2. LEVETIRACETAM [Suspect]
     Active Substance: LEVETIRACETAM
     Dosage: 60 MILLIGRAM/KILOGRAM, QD (MAINTENANC
     Route: 065
  3. FENTANYL [Suspect]
     Active Substance: FENTANYL
     Indication: Hypoxic-ischaemic encephalopathy
     Dosage: 1 MICROGRAM/KILOGRAM, QH, 1 UG/(KG/H)
     Route: 065
  4. FENTANYL [Suspect]
     Active Substance: FENTANYL
     Indication: Therapeutic hypothermia
     Dosage: 3 MICROGRAM/KILOGRAM, QH, 3 UG/(KG/H)
     Route: 065
  5. MIDAZOLAM [Suspect]
     Active Substance: MIDAZOLAM
     Indication: Seizure
     Dosage: 0.24 MG/KG, QH TITRATED UP TO 0.24 MG/(KG/H)]
     Route: 065
  6. MIDAZOLAM [Suspect]
     Active Substance: MIDAZOLAM
     Dosage: 0.06 MG/KG, QH , MIDAZOLAM [0.06 MG/(KG/H)
     Route: 065
  7. PHENOBARBITAL [Suspect]
     Active Substance: PHENOBARBITAL
     Indication: Seizure
     Dosage: 20 MILLIGRAM/KILOGRAM LOAD DOSE
     Route: 065
  8. PHENOBARBITAL [Suspect]
     Active Substance: PHENOBARBITAL
     Dosage: 5 MILLIGRAM/KILOGRAM,QD, MAINTENANCE 5 MG/(KG/D)
     Route: 065

REACTIONS (6)
  - Coma [Recovered/Resolved]
  - Misleading laboratory test result [Recovered/Resolved]
  - Condition aggravated [Recovered/Resolved]
  - Electroencephalogram abnormal [Recovered/Resolved]
  - Drug ineffective [Recovered/Resolved]
  - Product use issue [Unknown]
